FAERS Safety Report 4732579-4 (Version None)
Quarter: 2005Q3

REPORT INFORMATION
  Report Type: 
  Country: None (occurrence: None)
  Receive Date: 20050801
  Receipt Date: 20050719
  Transmission Date: 20060218
  Serious: Yes (Death, Other)
  Sender: FDA-Public Use
  Company Number: 2005104397

PATIENT
  Age: 82 Year
  Sex: Male

DRUGS (13)
  1. TIKOSYN [Suspect]
     Indication: ATRIAL FIBRILLATION
     Dosage: 1 MG (0.5 MG, 2 IN 1 D), ORAL
     Route: 048
  2. DRUG, UNSPECIFIED (DRUG, UNSPECIFIED) [Suspect]
     Indication: ILL-DEFINED DISORDER
     Dates: end: 20040101
  3. COUMADIN [Concomitant]
  4. LEXAPRO [Concomitant]
  5. PROSAC (FINASTERIDE) [Concomitant]
  6. LIPITOR [Concomitant]
  7. ZOLOFT [Concomitant]
  8. COZAAR [Concomitant]
  9. MAGNESIUM (MAGNESIUM) [Concomitant]
  10. VIOXX [Concomitant]
  11. CELEBREX [Concomitant]
  12. ATENOLOL [Concomitant]
  13. PREVACID (LANSOPRAOZLE) [Concomitant]

REACTIONS (15)
  - ATRIAL FIBRILLATION [None]
  - BRADYCARDIA [None]
  - CARDIAC FAILURE CONGESTIVE [None]
  - CLOSTRIDIAL INFECTION [None]
  - COUGH [None]
  - DEHYDRATION [None]
  - INCREASED UPPER AIRWAY SECRETION [None]
  - INTERNATIONAL NORMALISED RATIO INCREASED [None]
  - PYREXIA [None]
  - RECTAL HAEMORRHAGE [None]
  - RENAL DISORDER [None]
  - RENAL FAILURE [None]
  - TACHYCARDIA [None]
  - THERAPY NON-RESPONDER [None]
  - THROMBOSIS [None]
